FAERS Safety Report 9315540 (Version 1)
Quarter: 2013Q2

REPORT INFORMATION
  Report Type: Other
  Country: NL (occurrence: NL)
  Receive Date: 20130529
  Receipt Date: 20130529
  Transmission Date: 20140414
  Serious: Yes (Life-Threatening, Disabling)
  Sender: FDA-Public Use
  Company Number: NL-WATSON-2013-09442

PATIENT
  Age: 27 Year
  Sex: Male

DRUGS (1)
  1. DIAZEPAM (UNKNOWN) [Suspect]
     Indication: MENTAL DISORDER
     Dosage: 10 MG, FIVE TIMES DAILY
     Route: 048
     Dates: start: 20041101

REACTIONS (4)
  - Breath holding [Not Recovered/Not Resolved]
  - Diplopia [Not Recovered/Not Resolved]
  - Dysphagia [Not Recovered/Not Resolved]
  - Salivary hypersecretion [Not Recovered/Not Resolved]
